FAERS Safety Report 6070848-9 (Version None)
Quarter: 2009Q1

REPORT INFORMATION
  Report Type: 
  Country: None (occurrence: None)
  Receive Date: 20090209
  Receipt Date: 20081112
  Transmission Date: 20090719
  Serious: No
  Sender: FDA-Public Use
  Company Number: A0749032A

PATIENT
  Age: 38 Year
  Sex: Female

DRUGS (6)
  1. PAXIL [Suspect]
     Indication: DEPRESSION
     Dosage: 60MG PER DAY
     Route: 048
     Dates: start: 20071101
  2. BENADRYL [Suspect]
     Route: 048
  3. ALLEGRA [Concomitant]
  4. LAMICTAL [Concomitant]
  5. REGLAN [Concomitant]
  6. UNSPECIFIED MEDICATION [Concomitant]
     Indication: GASTROINTESTINAL DISORDER

REACTIONS (15)
  - BLOOD GLUCOSE DECREASED [None]
  - COLD SWEAT [None]
  - DIZZINESS [None]
  - FALL [None]
  - HEADACHE [None]
  - HYPERHIDROSIS [None]
  - MEDICATION ERROR [None]
  - MUSCULAR WEAKNESS [None]
  - NERVOUSNESS [None]
  - PRODUCT QUALITY ISSUE [None]
  - PSYCHOMOTOR SKILLS IMPAIRED [None]
  - SNEEZING [None]
  - VISION BLURRED [None]
  - VISUAL IMPAIRMENT [None]
  - VOMITING [None]
